FAERS Safety Report 7429595-0 (Version None)
Quarter: 2011Q2

REPORT INFORMATION
  Report Type: 
  Country: None (occurrence: None)
  Receive Date: 20110421
  Receipt Date: 20110211
  Transmission Date: 20111010
  Serious: Yes (Other)
  Sender: FDA-Public Use
  Company Number: B0701602A

PATIENT
  Sex: Female
  Weight: 110 kg

DRUGS (1)
  1. ARIXTRA [Suspect]
     Dosage: 2.5MG PER DAY
     Route: 058

REACTIONS (4)
  - ANGIOEDEMA [None]
  - URTICARIA [None]
  - HYPERSENSITIVITY [None]
  - ERYTHEMA [None]
